FAERS Safety Report 23952321 (Version 1)
Quarter: 2024Q2

REPORT INFORMATION
  Report Type: Spontaneous
  Country: VN (occurrence: VN)
  Receive Date: 20240607
  Receipt Date: 20240607
  Transmission Date: 20240715
  Serious: Yes (Other)
  Sender: FDA-Public Use
  Company Number: VN-009507513-2406VNM001913

PATIENT
  Age: 44 Year
  Sex: Male

DRUGS (1)
  1. KEYTRUDA [Suspect]
     Active Substance: PEMBROLIZUMAB
     Dosage: 200 MILLIGRAM, PER 3 WEEKS
     Dates: start: 20230913

REACTIONS (4)
  - Depressed level of consciousness [Unknown]
  - Lethargy [Unknown]
  - Fatigue [Unknown]
  - Irritability [Unknown]
